FAERS Safety Report 17822233 (Version 1)
Quarter: 2020Q2

REPORT INFORMATION
  Report Type: Spontaneous
  Country: FR (occurrence: FR)
  Receive Date: 20200526
  Receipt Date: 20200526
  Transmission Date: 20200714
  Serious: Yes (Hospitalization, Other)
  Sender: FDA-Public Use
  Company Number: FR-AUROBINDO-AUR-APL-2020-025339

PATIENT
  Age: 64 Year
  Sex: Male
  Weight: 104 kg

DRUGS (3)
  1. AMIODARONE ARROW 200MG SCORED TABLETS [Suspect]
     Active Substance: AMIODARONE
     Indication: CARDIOMYOPATHY
     Dosage: 200 MILLIGRAM
     Route: 048
     Dates: end: 20200401
  2. ZITHROMAX [Suspect]
     Active Substance: AZITHROMYCIN DIHYDRATE
     Indication: CORONAVIRUS INFECTION
     Dosage: 1 UNK
     Route: 048
     Dates: start: 20200325, end: 20200329
  3. PLAQUENIL [Suspect]
     Active Substance: HYDROXYCHLOROQUINE SULFATE
     Indication: CORONAVIRUS INFECTION
     Dosage: 600 MILLIGRAM
     Route: 048
     Dates: start: 20200326, end: 20200401

REACTIONS (2)
  - COVID-19 [Recovering/Resolving]
  - Electrocardiogram QT prolonged [Recovered/Resolved]

NARRATIVE: CASE EVENT DATE: 20200319
